FAERS Safety Report 8617711-4 (Version None)
Quarter: 2012Q3

REPORT INFORMATION
  Report Type: 
  Country: None (occurrence: None)
  Receive Date: 20120824
  Receipt Date: 20120112
  Transmission Date: 20120928
  Serious: No
  Sender: FDA-Public Use
  Company Number: US-ASTRAZENECA-2012SE02513

PATIENT
  Age: 74 Year
  Sex: Female
  Weight: 50.8 kg

DRUGS (3)
  1. SYMBICORT [Suspect]
     Indication: CHRONIC OBSTRUCTIVE PULMONARY DISEASE
     Route: 055
  2. SYMBICORT [Suspect]
     Indication: EMPHYSEMA
     Route: 055
  3. FLUOTICASONE NASAL SPRAY [Concomitant]

REACTIONS (2)
  - THROAT IRRITATION [None]
  - SENSATION OF FOREIGN BODY [None]
